FAERS Safety Report 4424680-X (Version None)
Quarter: 2004Q3

REPORT INFORMATION
  Report Type: 
  Country: None (occurrence: None)
  Receive Date: 20040809
  Receipt Date: 20040728
  Transmission Date: 20050211
  Serious: Yes (Death, Life-Threatening, Hospitalization, Other)
  Sender: FDA-Public Use
  Company Number: DE-JNJFOC-20040708066

PATIENT
  Age: 74 Year
  Sex: Female

DRUGS (14)
  1. LEVOFLOXACIN [Suspect]
     Indication: PNEUMONIA
     Dosage: INTRAVENOUS
     Route: 042
     Dates: start: 20030505, end: 20030512
  2. K-PHOS (POTASSIUM PHOSPHATE MONOBASIC) [Concomitant]
  3. MAGNESIUM SULFATE [Concomitant]
  4. PROCALAMINE (PROCALAMINE/OLD FORM/) [Concomitant]
  5. DIPRIVAN [Concomitant]
  6. TYLENOL [Concomitant]
  7. ATIVAN [Concomitant]
  8. CLAFORAN [Concomitant]
  9. ROCEPHIN [Concomitant]
  10. NIZORAL [Concomitant]
  11. ATROVENT [Concomitant]
  12. SOLU-MEDROL [Concomitant]
  13. PREDNISONE [Concomitant]
  14. ALBUTEROLL (SALBUTAMOL) [Concomitant]

REACTIONS (5)
  - CHRONIC OBSTRUCTIVE AIRWAYS DISEASE EXACERBATED [None]
  - LUNG CONSOLIDATION [None]
  - LUNG INFECTION [None]
  - RESPIRATORY ARREST [None]
  - STAPHYLOCOCCAL INFECTION [None]
